FAERS Safety Report 17781632 (Version 2)
Quarter: 2020Q2

REPORT INFORMATION
  Report Type: Spontaneous
  Country: SG (occurrence: SG)
  Receive Date: 20200514
  Receipt Date: 20200518
  Transmission Date: 20200714
  Serious: Yes (Life-Threatening)
  Sender: FDA-Public Use
  Company Number: SG-PFIZER INC-2020190963

PATIENT
  Age: 74 Year
  Sex: Male
  Weight: 59.9 kg

DRUGS (17)
  1. PHENYLEPHRINE [Suspect]
     Active Substance: PHENYLEPHRINE HYDROCHLORIDE
     Indication: HYPOTENSION
     Dosage: 5.5 MG (500 TO 1000 MCG/HR INFUSION)
  2. LIGNOCAINE [LIDOCAINE] [Concomitant]
     Active Substance: LIDOCAINE
     Indication: INDUCTION OF ANAESTHESIA
     Dosage: 80 MG (LNTRAOPERATIVE COURSE (4HR 40MIN))
  3. ADRENALINE [Suspect]
     Active Substance: EPINEPHRINE
     Indication: HYPOTENSION
     Dosage: 10 UG
     Route: 040
  4. PHENYLEPHRINE [Suspect]
     Active Substance: PHENYLEPHRINE HYDROCHLORIDE
     Indication: VASOPRESSIVE THERAPY
     Dosage: 200 UG(11 MG(200 MCG BOLUSES,INFUSION UP TO 3000 MCG/HR)(INTRAOPERATIVE COURSE(4H 40 MIN)
     Route: 040
  5. AMITRIPTYLINE [Concomitant]
     Active Substance: AMITRIPTYLINE
     Indication: DEPRESSION
     Dosage: 50 MG(ON-EVERY NIGHT)(PREADMISSION CLINIC)
  6. TERAZOSIN [Concomitant]
     Active Substance: TERAZOSIN HYDROCHLORIDE
     Indication: BENIGN PROSTATIC HYPERPLASIA
     Dosage: 2 MG(ON- EVERY NIGHT)(PREADMISSION CLINIC)
  7. FENTANYL. [Concomitant]
     Active Substance: FENTANYL
     Indication: INDUCTION OF ANAESTHESIA
     Dosage: 50 UG (INTRAOPERATIVE COURSE (4 HR 40 MIN)
     Route: 042
  8. EPHEDRINE SULFATE. [Suspect]
     Active Substance: EPHEDRINE SULFATE
     Indication: VASOPRESSIVE THERAPY
     Dosage: 90 MG (LNTRAOPERATIVE COURSE (4HR 40MIN),(ACHIEVING MAP 55-65
  9. EPHEDRINE SULFATE. [Suspect]
     Active Substance: EPHEDRINE SULFATE
     Indication: HYPOTENSION
  10. ADRENALINE [Suspect]
     Active Substance: EPINEPHRINE
     Indication: VASOPRESSIVE THERAPY
     Dosage: 100 UG, 2X/DAY(BOLUSES)
     Route: 040
  11. PHENYLEPHRINE [Suspect]
     Active Substance: PHENYLEPHRINE HYDROCHLORIDE
     Indication: ANAESTHESIA
  12. ALPRAZOLAM. [Concomitant]
     Active Substance: ALPRAZOLAM
     Indication: DEPRESSION
     Dosage: 0.25 MG, AS NEEDED (PRN) (PREADMISSION CLINIC)
  13. ROPIVACAINE. [Concomitant]
     Active Substance: ROPIVACAINE HYDROCHLORIDE
     Indication: ANAESTHESIA
     Dosage: 15 ML (PREOPERATIVE COURSE)
  14. ROCURONIUM [Concomitant]
     Active Substance: ROCURONIUM BROMIDE
     Indication: INDUCTION OF ANAESTHESIA
     Dosage: 40 MG (LNTRAOPERATIVE COURSE (4HR 40MIN)
  15. DESFLURANE. [Concomitant]
     Active Substance: DESFLURANE
     Indication: MAINTENANCE OF ANAESTHESIA
     Dosage: UNK (LNTRAOPERATIVE COURSE (4HR 40MIN)(3-4%(AGE ADJUSTED MAC 0.6), BIS 33-59)
  16. ZOPICLONE [Concomitant]
     Active Substance: ZOPICLONE
     Indication: DEPRESSION
     Dosage: 7.5 MG, AS NEEDED  (PRN) (PREADMISSION CLINIC)
  17. PROPOFOL. [Concomitant]
     Active Substance: PROPOFOL
     Indication: INDUCTION AND MAINTENANCE OF ANAESTHESIA
     Dosage: 110 MG (LNTRAOPERATIVE COURSE (4HR 40MIN)

REACTIONS (1)
  - Drug ineffective [Recovering/Resolving]
